FAERS Safety Report 9888150 (Version 1)
Quarter: 2014Q1

REPORT INFORMATION
  Report Type: Spontaneous
  Country: FR (occurrence: None)
  Receive Date: 20140207
  Receipt Date: 20140207
  Transmission Date: 20141002
  Serious: Yes (Death)
  Sender: FDA-Public Use
  Company Number: B0893200A

PATIENT
  Age: 48 Year
  Sex: Male
  Weight: 41.91 kg

DRUGS (8)
  1. PAROXETINE HYDROCHLORIDE [Suspect]
     Indication: PRODUCT USED FOR UNKNOWN INDICATION
     Dosage: SINGLE DOSE?
     Route: 048
     Dates: start: 20130430, end: 20130430
  2. RISPERIDONE [Suspect]
     Indication: PRODUCT USED FOR UNKNOWN INDICATION
     Dosage: SINGLE DOSE?
     Route: 048
     Dates: start: 20130430, end: 20130430
  3. OMEPRAZOLE [Suspect]
     Indication: PRODUCT USED FOR UNKNOWN INDICATION
     Dosage: SINGLE DOSE?
     Route: 048
     Dates: start: 20130430, end: 20130430
  4. DEPAKINE CHRONO CONTROLLED RELEASE [Suspect]
     Indication: PRODUCT USED FOR UNKNOWN INDICATION
     Dosage: SINGLE DOSE?
     Route: 048
     Dates: start: 20130430, end: 20130430
  5. TETRAZEPAM [Suspect]
     Indication: PRODUCT USED FOR UNKNOWN INDICATION
     Dosage: SINGLE DOSE?
     Route: 048
     Dates: start: 20130430, end: 20130430
  6. THIOCOLCHICOSIDE [Concomitant]
  7. MOVICOL [Concomitant]
  8. ENTERAL PRODUCT (UNSPECIFIED) [Concomitant]

REACTIONS (4)
  - Cardiac arrest [None]
  - Wrong patient received medication [None]
  - Medication error [None]
  - Sudden cardiac death [None]
